FAERS Safety Report 10586977 (Version 6)
Quarter: 2015Q1

REPORT INFORMATION
  Report Type: Report from Study
  Country: DE (occurrence: DE)
  Receive Date: 20141117
  Receipt Date: 20150309
  Transmission Date: 20150720
  Serious: Yes (Hospitalization)
  Sender: FDA-Public Use
  Company Number: PHHO2014DE014688

PATIENT
  Age: 65 Year
  Sex: Female
  Weight: 77 kg

DRUGS (5)
  1. PREDNISONE. [Concomitant]
     Active Substance: PREDNISONE
     Indication: RENAL TRANSPLANT
     Dosage: 10 MG, QD
     Route: 048
     Dates: start: 20140904
  2. SIMULECT [Concomitant]
     Active Substance: BASILIXIMAB
     Indication: RENAL TRANSPLANT
     Dosage: 20 MG, QD
     Route: 042
     Dates: start: 20140903
  3. TACROLIMUS. [Suspect]
     Active Substance: TACROLIMUS
     Indication: RENAL TRANSPLANT
     Dosage: UNK
     Route: 065
  4. EVEROLIMUS [Suspect]
     Active Substance: EVEROLIMUS
     Indication: RENAL TRANSPLANT
     Dosage: 1.25 MG, BID
     Route: 048
     Dates: start: 20140903, end: 20141028
  5. CICLOSPORIN [Concomitant]
     Active Substance: CYCLOSPORINE
     Indication: RENAL TRANSPLANT
     Dosage: 75 MG, BID
     Route: 048
     Dates: start: 20140903, end: 20141028

REACTIONS (2)
  - Lymphocele [Not Recovered/Not Resolved]
  - Kidney transplant rejection [Not Recovered/Not Resolved]

NARRATIVE: CASE EVENT DATE: 20141028
